FAERS Safety Report 4691216-8 (Version None)
Quarter: 2005Q2

REPORT INFORMATION
  Report Type: 
  Country: None (occurrence: None)
  Receive Date: 20050614
  Receipt Date: 20050531
  Transmission Date: 20051028
  Serious: Yes (Other)
  Sender: FDA-Public Use
  Company Number: 2005079632

PATIENT
  Age: 23 Year
  Sex: Female

DRUGS (3)
  1. DEPO-PROVERA [Suspect]
     Indication: ILL-DEFINED DISORDER
     Dosage: SEE IMAGE
     Dates: start: 19950707, end: 19950707
  2. DEPO-PROVERA [Suspect]
     Indication: ILL-DEFINED DISORDER
     Dosage: SEE IMAGE
     Dates: start: 19951005, end: 19951005
  3. DEPO-PROVERA [Suspect]
     Indication: ILL-DEFINED DISORDER
     Dosage: SEE IMAGE
     Dates: start: 19951129, end: 19951129

REACTIONS (7)
  - BACK PAIN [None]
  - BENIGN BREAST NEOPLASM [None]
  - BREAST TENDERNESS [None]
  - CHEST PAIN [None]
  - GALACTORRHOEA [None]
  - HYPERSENSITIVITY [None]
  - MENORRHAGIA [None]
